FAERS Safety Report 23667674 (Version 1)
Quarter: 2024Q1

REPORT INFORMATION
  Report Type: Spontaneous
  Country: US (occurrence: None)
  Receive Date: 20240325
  Receipt Date: 20240325
  Transmission Date: 20240410
  Serious: Yes (Hospitalization)
  Sender: FDA-Public Use
  Company Number: US-ROCHE-3527222

PATIENT

DRUGS (1)
  1. ERIVEDGE [Suspect]
     Active Substance: VISMODEGIB
     Indication: Product used for unknown indication
     Route: 065

REACTIONS (5)
  - Weight decreased [Unknown]
  - Hepatic enzyme increased [Unknown]
  - Glomerular filtration rate decreased [Unknown]
  - Chronic kidney disease [Unknown]
  - Alopecia totalis [Unknown]
